FAERS Safety Report 6869462-4 (Version None)
Quarter: 2010Q3

REPORT INFORMATION
  Report Type: 
  Country: None (occurrence: None)
  Receive Date: 20100722
  Receipt Date: 20080922
  Transmission Date: 20110219
  Serious: No
  Sender: FDA-Public Use
  Company Number: US-PFIZER INC-2008062057

PATIENT
  Sex: Male
  Weight: 185 kg

DRUGS (3)
  1. CHANTIX [Suspect]
     Indication: TOBACCO ABUSE
     Route: 048
     Dates: start: 20070701, end: 20070801
  2. ANTIDEPRESSANTS [Concomitant]
     Indication: DEPRESSION
  3. ACETYLSALICYLIC ACID [Concomitant]
     Indication: CARDIAC DISORDER
     Route: 048

REACTIONS (3)
  - ABNORMAL DREAMS [None]
  - DEPRESSION [None]
  - NIGHTMARE [None]
